FAERS Safety Report 7230757-6 (Version None)
Quarter: 2011Q1

REPORT INFORMATION
  Report Type: 
  Country: None (occurrence: None)
  Receive Date: 20110118
  Receipt Date: 20110106
  Transmission Date: 20110831
  Serious: Yes (Other)
  Sender: FDA-Public Use
  Company Number: PHHY2011CL00973

PATIENT
  Age: 74 Year
  Sex: Female

DRUGS (7)
  1. GLUCOVANCE [Concomitant]
     Dosage: 5 MG GLIB AND 500MG METF
     Route: 048
  2. CATAPRESAN [Concomitant]
     Dosage: 0.150 MG
     Route: 048
  3. ATENOLOL [Concomitant]
     Dosage: 50 MG
     Route: 048
  4. CLONAZEPAM [Concomitant]
  5. HIPOGLUCIN [Concomitant]
     Dosage: 850 MG
     Route: 048
  6. TAREG D [Suspect]
     Indication: HYPERTENSION
     Dosage: 160/25 MG, 1 TABLET DAILY
     Route: 048
  7. GLIBENCLAMIDE [Concomitant]
     Dosage: 5 MG
     Route: 048

REACTIONS (3)
  - NERVOUSNESS [None]
  - ANGER [None]
  - BLOOD PRESSURE INCREASED [None]
